FAERS Safety Report 15221551 (Version 2)
Quarter: 2020Q3

REPORT INFORMATION
  Report Type: Spontaneous
  Country: FR (occurrence: FR)
  Receive Date: 20180731
  Receipt Date: 20200714
  Transmission Date: 20201102
  Serious: Yes (Other)
  Sender: FDA-Public Use
  Company Number: FR-SA-2018SA194355

PATIENT

DRUGS (19)
  1. SEVELAMER SALT NOT SPECIFIED [Suspect]
     Active Substance: SEVELAMER
     Indication: CHRONIC KIDNEY DISEASE
     Dosage: 800 MG, QD
  2. CALCIUM CARBONATE. [Concomitant]
     Active Substance: CALCIUM CARBONATE
     Indication: MINERAL SUPPLEMENTATION
     Dosage: 1 G, QM
  3. SPIRONOLACTONE. [Concomitant]
     Active Substance: SPIRONOLACTONE
     Indication: HYPERTENSION
     Dosage: 100 MG
  4. VITAMIN D NOS [Concomitant]
     Active Substance: VITAMIN D NOS
     Indication: SUPPLEMENTATION THERAPY
     Dosage: 25 OH, 100000 IU, QM
  5. LEVOTHYROXINE SODIUM. [Suspect]
     Active Substance: LEVOTHYROXINE SODIUM
     Indication: THYROID HORMONE REPLACEMENT THERAPY
     Dosage: 150 UG
  6. SEVELAMER SALT NOT SPECIFIED [Suspect]
     Active Substance: SEVELAMER
     Dosage: REINTRODUCED; TAKEN AT LEAST 6 H AFTER LEVOTHYROXINE
  7. PERINDOPRIL [Concomitant]
     Active Substance: PERINDOPRIL
     Indication: HYPERTENSION
     Dosage: 2.5 MG
  8. VALPROIC ACID. [Concomitant]
     Active Substance: VALPROIC ACID
     Indication: PSYCHOTIC DISORDER
     Dosage: 600 MG
  9. COLECALCIFEROL [Concomitant]
     Active Substance: CHOLECALCIFEROL
  10. LEVOTHYROXINE SODIUM. [Suspect]
     Active Substance: LEVOTHYROXINE SODIUM
     Dosage: 100 UG, QD
  11. KAYEXALATE [Concomitant]
     Active Substance: SODIUM POLYSTYRENE SULFONATE
     Indication: CHRONIC KIDNEY DISEASE
     Dosage: NON DIALYSIS DAYS
  12. DARBEPOETIN ALFA [Concomitant]
     Active Substance: DARBEPOETIN ALFA
     Dosage: 20 UG, QW, PHOSPHATE BINDERS
  13. SODIUM BICARBONATE. [Concomitant]
     Active Substance: SODIUM BICARBONATE
     Indication: SUPPLEMENTATION THERAPY
     Dosage: 500 MG, QM
  14. COLECALCIFEROL [Concomitant]
     Active Substance: CHOLECALCIFEROL
  15. SEVELAMER SALT NOT SPECIFIED [Suspect]
     Active Substance: SEVELAMER
     Dosage: 800 MG, TID  (2.4 G A DAY)
  16. LAMOTRIGINE. [Concomitant]
     Active Substance: LAMOTRIGINE
     Indication: PSYCHOTIC DISORDER
     Dosage: 100 MG
  17. CALCIFEDIOL [Concomitant]
     Active Substance: CALCIFEDIOL
     Dosage: 100000 IU, QM
  18. LEVOTHYROXINE SODIUM. [Suspect]
     Active Substance: LEVOTHYROXINE SODIUM
     Dosage: IN THE MORNING AFTER NIGHT FASTING
  19. AMLODIPINE [Concomitant]
     Active Substance: AMLODIPINE BESYLATE
     Indication: HYPERTENSION
     Dosage: 20 MG

REACTIONS (3)
  - Hypothyroidism [Recovered/Resolved]
  - Fatigue [Recovering/Resolving]
  - Drug interaction [Recovering/Resolving]
